FAERS Safety Report 10959892 (Version 1)
Quarter: 2015Q1

REPORT INFORMATION
  Report Type: Spontaneous
  Country: US (occurrence: US)
  Receive Date: 20150327
  Receipt Date: 20150327
  Transmission Date: 20150721
  Serious: Yes (Hospitalization)
  Sender: FDA-Public Use
  Company Number: US-BAYER-2015-062246

PATIENT
  Age: 43 Year
  Sex: Female
  Weight: 72.11 kg

DRUGS (8)
  1. DILAUDID [Concomitant]
     Active Substance: HYDROMORPHONE HYDROCHLORIDE
  2. MORPHINE [Concomitant]
     Active Substance: MORPHINE
  3. YAZ [Suspect]
     Active Substance: DROSPIRENONE\ETHINYL ESTRADIOL
  4. YASMIN [Suspect]
     Active Substance: DROSPIRENONE\ETHINYL ESTRADIOL
     Indication: MENORRHAGIA
  5. LORATADINE. [Concomitant]
     Active Substance: LORATADINE
     Indication: NASAL CONGESTION
     Dosage: 10 MG, PRN,  1 TABLET DAILY
     Route: 048
  6. ZOFRAN [Concomitant]
     Active Substance: ONDANSETRON HYDROCHLORIDE
  7. LUPRON [Concomitant]
     Active Substance: LEUPROLIDE ACETATE
  8. FERROUS SULFATE [Concomitant]
     Active Substance: FERROUS SULFATE\FERROUS SULFATE, DRIED
     Dosage: 325 MG, 1 TABLET DAILY
     Route: 048

REACTIONS (1)
  - Pulmonary embolism [None]

NARRATIVE: CASE EVENT DATE: 20130306
